FAERS Safety Report 22263622 (Version 1)
Quarter: 2023Q2

REPORT INFORMATION
  Report Type: Spontaneous
  Country: US (occurrence: US)
  Receive Date: 20230428
  Receipt Date: 20230428
  Transmission Date: 20230721
  Serious: No
  Sender: FDA-Public Use
  Company Number: US-009507513-2304USA003597

PATIENT
  Age: 45 Year
  Sex: Male

DRUGS (1)
  1. ZOLINZA [Suspect]
     Active Substance: VORINOSTAT
     Indication: Acute myeloid leukaemia
     Dosage: 500 MILLIGRAM, TWO TIMES A DAY (BID) DAYS 1-3
     Route: 048

REACTIONS (1)
  - Product use in unapproved indication [Unknown]
